FAERS Safety Report 6185279-0 (Version None)
Quarter: 2009Q2

REPORT INFORMATION
  Report Type: 
  Country: None (occurrence: None)
  Receive Date: 20090511
  Receipt Date: 20090430
  Transmission Date: 20091009
  Serious: Yes (Other)
  Sender: FDA-Public Use
  Company Number: US-ROCHE-619165

PATIENT
  Sex: Female

DRUGS (5)
  1. PEG-INTERFERON A-2A (RO 25-8310) [Suspect]
     Dosage: FORM: PFS
     Route: 065
     Dates: start: 20081221, end: 20090301
  2. RIBAPAK [Suspect]
     Dosage: DIVIDED DOSE
     Route: 065
     Dates: start: 20081221, end: 20090301
  3. DEPAKOTE [Concomitant]
  4. SYNTHROID [Concomitant]
     Indication: THYROID DISORDER
     Route: 048
  5. SALATIN [Concomitant]
     Dosage: TAKEN AT NIGHT
     Route: 048

REACTIONS (4)
  - ABDOMINAL DISTENSION [None]
  - AMMONIA INCREASED [None]
  - CONVULSION [None]
  - GRAND MAL CONVULSION [None]
